FAERS Safety Report 5786757-6 (Version None)
Quarter: 2008Q2

REPORT INFORMATION
  Report Type: 
  Country: None (occurrence: None)
  Receive Date: 20080618
  Receipt Date: 20080609
  Transmission Date: 20081010
  Serious: Yes (Life-Threatening)
  Sender: FDA-Public Use
  Company Number: ADE2008-0235

PATIENT
  Age: 39 Year
  Sex: Male
  Weight: 95.2 kg

DRUGS (1)
  1. BISOPROLOL FUMARATE [Suspect]
     Indication: ANGINA PECTORIS
     Dosage: 5MG,ORAL
     Route: 048
     Dates: start: 20080303, end: 20080324

REACTIONS (2)
  - DEPRESSION [None]
  - SUICIDAL BEHAVIOUR [None]
